FAERS Safety Report 7731139-0 (Version None)
Quarter: 2011Q3

REPORT INFORMATION
  Report Type: 
  Country: None (occurrence: None)
  Receive Date: 20110906
  Receipt Date: 20110906
  Transmission Date: 20111222
  Serious: Yes (Hospitalization, Other)
  Sender: FDA-Public Use
  Company Number: None

PATIENT
  Age: 44 Year
  Sex: Female
  Weight: 79.378 kg

DRUGS (1)
  1. REMERON [Suspect]
     Indication: MAJOR DEPRESSION
     Dosage: TID
     Route: 048
     Dates: start: 20110711, end: 20110813

REACTIONS (15)
  - CONFUSIONAL STATE [None]
  - AGITATION [None]
  - WEIGHT INCREASED [None]
  - TREMOR [None]
  - PANIC REACTION [None]
  - LOGORRHOEA [None]
  - OROPHARYNGEAL PAIN [None]
  - RESTLESSNESS [None]
  - DYSPNOEA [None]
  - DIZZINESS [None]
  - ANGER [None]
  - CONSTIPATION [None]
  - PRESSURE OF SPEECH [None]
  - ANXIETY [None]
  - CEREBROVASCULAR ACCIDENT [None]
